FAERS Safety Report 10210601 (Version 1)
Quarter: 2014Q2

REPORT INFORMATION
  Report Type: Spontaneous
  Country: US (occurrence: None)
  Receive Date: 20140528
  Receipt Date: 20140528
  Transmission Date: 20141212
  Serious: Yes (Death)
  Sender: FDA-Public Use
  Company Number: ADR-2014-00884

PATIENT
  Age: 51 Year
  Sex: Female

DRUGS (4)
  1. COMPOUNDED BACLOFEN [Suspect]
     Indication: CANCER PAIN
  2. DILAUDID INTRATHECAL [Suspect]
  3. BUPIVACAINE [Suspect]
  4. CLONIDINE [Suspect]

REACTIONS (1)
  - Plasma cell myeloma [None]
